FAERS Safety Report 23601110 (Version 1)
Quarter: 2024Q1

REPORT INFORMATION
  Report Type: Spontaneous
  Country: US (occurrence: US)
  Receive Date: 20240306
  Receipt Date: 20240306
  Transmission Date: 20240409
  Serious: Yes (Other)
  Sender: FDA-Public Use
  Company Number: US-PFIZER INC-PV202400030638

PATIENT
  Age: 75 Year
  Sex: Male

DRUGS (8)
  1. LINEZOLID [Suspect]
     Active Substance: LINEZOLID
     Indication: Mycobacterium avium complex infection
     Dosage: UNK
     Dates: start: 202301, end: 2023
  2. LINEZOLID [Suspect]
     Active Substance: LINEZOLID
     Indication: Pneumonia bacterial
     Dosage: 600 MG, 2X/DAY
     Dates: start: 2023, end: 2023
  3. MOXIFLOXACIN [Suspect]
     Active Substance: MOXIFLOXACIN
     Indication: Mycobacterium avium complex infection
     Dosage: UNK
     Dates: start: 202301
  4. MOXIFLOXACIN [Suspect]
     Active Substance: MOXIFLOXACIN
     Indication: Pneumonia bacterial
     Dosage: 400 MG, DAILY; 1 WEEK
  5. MOXIFLOXACIN [Suspect]
     Active Substance: MOXIFLOXACIN
     Dosage: UNK
     Dates: start: 202304, end: 202305
  6. ETHAMBUTOL [Suspect]
     Active Substance: ETHAMBUTOL HYDROCHLORIDE
     Indication: Mycobacterium avium complex infection
     Dosage: 1600 MG, DAILY; 1 WEEK
     Dates: start: 202301
  7. ETHAMBUTOL [Suspect]
     Active Substance: ETHAMBUTOL HYDROCHLORIDE
     Indication: Pneumonia bacterial
     Dosage: UNK
     Dates: start: 202304, end: 202305
  8. WARFARIN [Concomitant]
     Active Substance: WARFARIN
     Dosage: UNK

REACTIONS (5)
  - Upper gastrointestinal haemorrhage [Unknown]
  - Anaemia [Unknown]
  - Nausea [Unknown]
  - Diarrhoea [Unknown]
  - Off label use [Unknown]

NARRATIVE: CASE EVENT DATE: 20230101
